FAERS Safety Report 7353513-7 (Version None)
Quarter: 2011Q1

REPORT INFORMATION
  Report Type: 
  Country: None (occurrence: None)
  Receive Date: 20110315
  Receipt Date: 20110311
  Transmission Date: 20110831
  Serious: Yes (Death)
  Sender: FDA-Public Use
  Company Number: DE-PFIZER INC-2011055056

PATIENT
  Sex: Male

DRUGS (1)
  1. SORTIS [Suspect]
     Route: 048

REACTIONS (2)
  - DEATH [None]
  - BLOOD CHOLESTEROL INCREASED [None]
